FAERS Safety Report 10122849 (Version 2)
Quarter: 2015Q1

REPORT INFORMATION
  Report Type: Other
  Country: US (occurrence: US)
  Receive Date: 20140427
  Receipt Date: 20150129
  Transmission Date: 20150720
  Serious: Yes (Hospitalization, Other)
  Sender: FDA-Public Use
  Company Number: US-GSKPPD-2014GSK027234

PATIENT
  Age: 42 Year
  Sex: Female

DRUGS (6)
  1. ASPIRIN. [Concomitant]
     Active Substance: ASPIRIN
     Route: 048
  2. FUROSEMIDE. [Concomitant]
     Active Substance: FUROSEMIDE
     Route: 048
  3. NITROGLYCERIN. [Concomitant]
     Active Substance: NITROGLYCERIN
  4. MICARDIS [Concomitant]
     Active Substance: TELMISARTAN
     Dosage: 80/25MG
     Route: 048
  5. AVANDIA [Suspect]
     Active Substance: ROSIGLITAZONE MALEATE
     Indication: DIABETES MELLITUS
     Dosage: DATES OF AVANDIA USE COULD NOT BE CONFIRMED IN RECORDS REVIEWED.
     Route: 048
  6. NORVASC [Concomitant]
     Active Substance: AMLODIPINE BESYLATE
     Route: 048

REACTIONS (1)
  - Transient ischaemic attack [Recovered/Resolved]

NARRATIVE: CASE EVENT DATE: 20061120
